FAERS Safety Report 5583888-0 (Version None)
Quarter: 2008Q1

REPORT INFORMATION
  Report Type: 
  Country: None (occurrence: None)
  Receive Date: 20080103
  Receipt Date: 20071218
  Transmission Date: 20080703
  Serious: No
  Sender: FDA-Public Use
  Company Number: TPA2007A02515

PATIENT
  Age: 80 Year
  Sex: Female

DRUGS (10)
  1. ACTOS [Suspect]
     Indication: TYPE 2 DIABETES MELLITUS
     Dosage: 90 MG, ONCE, PER ORAL; 45 MG, 1 IN 1 D, PER ORAL
     Route: 048
     Dates: start: 20071121, end: 20071121
  2. NAMENDA [Suspect]
     Indication: DEMENTIA
     Dosage: SEE IMAGE
     Route: 048
     Dates: start: 20071022, end: 20071028
  3. NAMENDA [Suspect]
     Indication: DEMENTIA
     Dosage: SEE IMAGE
     Route: 048
     Dates: start: 20071029, end: 20071104
  4. NAMENDA [Suspect]
     Indication: DEMENTIA
     Dosage: SEE IMAGE
     Route: 048
     Dates: start: 20071105, end: 20071111
  5. NAMENDA [Suspect]
     Indication: DEMENTIA
     Dosage: SEE IMAGE
     Route: 048
     Dates: start: 20071121, end: 20071121
  6. NAMENDA [Suspect]
     Indication: DEMENTIA
     Dosage: SEE IMAGE
     Route: 048
     Dates: start: 20071112
  7. AMARYL [Suspect]
     Indication: TYPE 2 DIABETES MELLITUS
     Dosage: 1 MG, ONCE, PER ORAL; 0.5 MG, 1 IN 1 D, PER ORAL
     Route: 048
     Dates: start: 20071121, end: 20071121
  8. DIOVAN HCT [Suspect]
     Dosage: 2 TAB., ONCE, PER ORAL; 1 TAB., 1 IN 1 D, PER ORAL
     Route: 048
     Dates: start: 20071121, end: 20071121
  9. ARICEPT [Concomitant]
  10. ZOCOR [Concomitant]

REACTIONS (4)
  - ANXIETY [None]
  - HYPOGLYCAEMIA [None]
  - INCORRECT DOSE ADMINISTERED [None]
  - TREMOR [None]
